FAERS Safety Report 11610871 (Version 1)
Quarter: 2015Q4

REPORT INFORMATION
  Report Type: Spontaneous
  Country: US (occurrence: None)
  Receive Date: 20151007
  Receipt Date: 20151007
  Transmission Date: 20160304
  Serious: Yes (Other)
  Sender: FDA-Public Use
  Company Number: None

PATIENT
  Age: 64 Year
  Sex: Female

DRUGS (10)
  1. METFORMIN [Concomitant]
     Active Substance: METFORMIN HYDROCHLORIDE
  2. ALBUTEROL NEB [Concomitant]
  3. CAPECITABINE 150MG TABLET TEVA [Suspect]
     Active Substance: CAPECITABINE
     Indication: BREAST CANCER
     Route: 048
     Dates: start: 20150902, end: 20150909
  4. GLIMEPIRIDE. [Concomitant]
     Active Substance: GLIMEPIRIDE
  5. CARDIZEM [Concomitant]
     Active Substance: DILTIAZEM HYDROCHLORIDE
  6. NOVOLIN N [Concomitant]
     Active Substance: INSULIN HUMAN
  7. LISINOPRIL. [Concomitant]
     Active Substance: LISINOPRIL
  8. CAPECITABINE 500MG TABLET TEVA [Suspect]
     Active Substance: CAPECITABINE
     Indication: BREAST CANCER
     Route: 048
     Dates: start: 20150902, end: 20150909
  9. MAGNESIUM/CALCIUM/ZINC COMBINATION [Concomitant]
  10. APAP [Concomitant]
     Active Substance: ACETAMINOPHEN

REACTIONS (6)
  - Dysuria [None]
  - Bedridden [None]
  - Flank pain [None]
  - Anuria [None]
  - Malaise [None]
  - Renal failure [None]

NARRATIVE: CASE EVENT DATE: 20150901
